FAERS Safety Report 17845318 (Version 2)
Quarter: 2020Q4

REPORT INFORMATION
  Report Type: Report from Study
  Country: IT (occurrence: IT)
  Receive Date: 20200601
  Receipt Date: 20201202
  Transmission Date: 20210113
  Serious: Yes (Other)
  Sender: FDA-Public Use
  Company Number: PHHO2017IT003616

PATIENT
  Age: 63 Year
  Sex: Male
  Weight: 73 kg

DRUGS (11)
  1. UROREC [Concomitant]
     Active Substance: SILODOSIN
     Indication: URINARY TRACT OBSTRUCTION
     Dosage: 8 MG, BID (DIE)
     Route: 065
     Dates: start: 20130603
  2. BAF312 [Suspect]
     Active Substance: SIPONIMOD
     Indication: SECONDARY PROGRESSIVE MULTIPLE SCLEROSIS
     Dosage: 2 MG
     Route: 048
     Dates: start: 20160518
  3. SIPONIMOD [Suspect]
     Active Substance: SIPONIMOD
     Indication: SECONDARY PROGRESSIVE MULTIPLE SCLEROSIS
     Dosage: UNK
     Route: 048
     Dates: start: 20150226, end: 20160222
  4. BETMIGA [Concomitant]
     Active Substance: MIRABEGRON
     Indication: URINARY INCONTINENCE
  5. OMEPRAZOLE. [Concomitant]
     Active Substance: OMEPRAZOLE
     Dosage: 1 GR/SLE
     Route: 065
     Dates: start: 20100110
  6. STENOX [Concomitant]
     Indication: PRODUCT USED FOR UNKNOWN INDICATION
     Dosage: UNK
     Route: 065
     Dates: start: 20160926
  7. SATIVEX [Concomitant]
     Active Substance: NABIXIMOLS
     Indication: MUSCLE SPASTICITY
     Dosage: 3 DF (PUFF), BID
     Route: 055
     Dates: start: 20130923
  8. OMEPRAZOLE. [Concomitant]
     Active Substance: OMEPRAZOLE
     Indication: PROPHYLAXIS
     Dosage: 20 MG, BID (DIE)
     Route: 065
     Dates: start: 20080110
  9. UROREC [Concomitant]
     Active Substance: SILODOSIN
     Indication: URINARY INCONTINENCE
  10. BETMIGA [Concomitant]
     Active Substance: MIRABEGRON
     Indication: URINARY TRACT INFECTION
     Dosage: 50 MG, BID (DIE)
     Route: 065
     Dates: start: 20130603
  11. INEGY [Concomitant]
     Active Substance: EZETIMIBE\SIMVASTATIN
     Indication: HYPERCHOLESTEROLAEMIA
     Dosage: 10 MG, BID (DIE)
     Route: 065
     Dates: start: 20130620

REACTIONS (3)
  - Basal cell carcinoma [Recovered/Resolved]
  - Basal cell carcinoma [Recovered/Resolved]
  - Squamous cell carcinoma [Recovered/Resolved]

NARRATIVE: CASE EVENT DATE: 201701
